FAERS Safety Report 14760068 (Version 1)
Quarter: 2018Q2

REPORT INFORMATION
  Report Type: Spontaneous
  Country: GB (occurrence: FR)
  Receive Date: 20180413
  Receipt Date: 20180413
  Transmission Date: 20180711
  Serious: Yes (Death, Life-Threatening, Other)
  Sender: FDA-Public Use
  Company Number: FR-FRESENIUS KABI-FK201804474

PATIENT
  Age: 27 Week
  Sex: Female
  Weight: .88 kg

DRUGS (4)
  1. VANCOMYCIN (MANUFACTURER UNKNOWN) [Suspect]
     Active Substance: VANCOMYCIN
     Indication: PRODUCT USED FOR UNKNOWN INDICATION
     Route: 042
  2. CEFOTAXIME SODIUM [Suspect]
     Active Substance: CEFOTAXIME SODIUM
     Indication: BACILLUS INFECTION
     Route: 042
     Dates: start: 2013
  3. VANCOMYCIN (MANUFACTURER UNKNOWN) [Suspect]
     Active Substance: VANCOMYCIN
     Indication: BACILLUS INFECTION
     Route: 042
     Dates: start: 2013
  4. GENTAMICIN SULFATE. [Suspect]
     Active Substance: GENTAMICIN SULFATE
     Indication: BACILLUS INFECTION
     Route: 042
     Dates: start: 2013

REACTIONS (3)
  - Drug ineffective [Not Recovered/Not Resolved]
  - Pulmonary necrosis [Fatal]
  - Hypoxia [Fatal]

NARRATIVE: CASE EVENT DATE: 2013
